FAERS Safety Report 4352985-X (Version None)
Quarter: 2004Q2

REPORT INFORMATION
  Report Type: 
  Country: None (occurrence: None)
  Receive Date: 20040430
  Receipt Date: 20040126
  Transmission Date: 20050107
  Serious: No
  Sender: FDA-Public Use
  Company Number: 204357

PATIENT
  Age: 35 Year
  Sex: Female
  Weight: 83.4 kg

DRUGS (6)
  1. XOLAIR [Suspect]
     Indication: ASTHMA
     Dosage: 300 MG, Q4W, SUBCUTANEOUS
     Route: 058
     Dates: start: 20031229
  2. PREDNISONE [Concomitant]
  3. ADVAIR (SALMETEROL XINAFOATE, FLUTCASONE PROPIONATE) [Concomitant]
  4. SINGULAIR [Concomitant]
  5. THEO-24 (THEOPHYLLINE) [Concomitant]
  6. ZYRTEC [Concomitant]

REACTIONS (3)
  - CHEST DISCOMFORT [None]
  - DYSPNOEA [None]
  - PRURITUS [None]
